FAERS Safety Report 24439708 (Version 1)
Quarter: 2024Q4

REPORT INFORMATION
  Report Type: Spontaneous
  Country: ES (occurrence: ES)
  Receive Date: 20241015
  Receipt Date: 20241015
  Transmission Date: 20250114
  Serious: Yes (Hospitalization, Other)
  Sender: TEVA
  Company Number: None

PATIENT
  Age: 69 Year
  Sex: Male

DRUGS (5)
  1. FLUCONAZOLE [Suspect]
     Active Substance: FLUCONAZOLE
     Indication: Product used for unknown indication
     Dosage: FLUCONAZOLE (2432A)
     Route: 048
     Dates: start: 20240627, end: 20240708
  2. AMOXICILLIN\CLAVULANATE POTASSIUM [Concomitant]
     Active Substance: AMOXICILLIN\CLAVULANATE POTASSIUM
     Indication: Abdominal sepsis
     Dosage: 1000MG/200MG EVERY 8 HOURS: 1,000 MG/200 MG INJECTABLE
     Route: 042
     Dates: start: 20240609, end: 20240615
  3. VANCOMYCIN [Concomitant]
     Active Substance: VANCOMYCIN
     Indication: Abdominal sepsis
     Dosage: 1000MG EVERY 12 HOURS: MIP EFG, 5 VIALS
     Route: 042
     Dates: start: 20240616, end: 20240624
  4. PIPERACILLIN SODIUM\TAZOBACTAM SODIUM [Suspect]
     Active Substance: PIPERACILLIN SODIUM\TAZOBACTAM SODIUM
     Indication: Abdominal sepsis
     Dosage: 1 VIAL EVERY 6 HOURS: 4/0.5 G EFG, 50 VIALS , PIPERACILINA TAZOBACTAM ACCORD
     Route: 042
     Dates: start: 20240615, end: 20240628
  5. CIPROFLOXACIN HYDROCHLORIDE [Suspect]
     Active Substance: CIPROFLOXACIN HYDROCHLORIDE
     Indication: Abdominal sepsis
     Dosage: CIPROFLOXACIN (2049A)
     Route: 042
     Dates: start: 20240624, end: 20240708

REACTIONS (1)
  - Hepatitis cholestatic [Recovering/Resolving]

NARRATIVE: CASE EVENT DATE: 20240627
